FAERS Safety Report 9190264 (Version 1)
Quarter: 2013Q1

REPORT INFORMATION
  Report Type: Spontaneous
  Country: US (occurrence: None)
  Receive Date: 20130325
  Receipt Date: 20130325
  Transmission Date: 20140127
  Serious: No
  Sender: FDA-Public Use
  Company Number: None

PATIENT
  Sex: Male

DRUGS (6)
  1. ZELBORAF [Suspect]
     Indication: MALIGNANT MELANOMA
     Dosage: 2 BID PO
     Route: 048
  2. MORPHINE [Concomitant]
  3. OXYCODONE [Concomitant]
  4. IBUPROFEN [Concomitant]
  5. HYDROMORPHONE [Concomitant]
  6. LEVOTHYROXIN [Concomitant]

REACTIONS (2)
  - Drug ineffective [None]
  - Disease progression [None]
